FAERS Safety Report 6122172-3 (Version None)
Quarter: 2009Q1

REPORT INFORMATION
  Report Type: 
  Country: None (occurrence: None)
  Receive Date: 20090318
  Receipt Date: 20090310
  Transmission Date: 20090719
  Serious: No
  Sender: FDA-Public Use
  Company Number: US-JNJFOC-20090303006

PATIENT
  Age: 21 Year
  Sex: Male
  Weight: 72.58 kg

DRUGS (11)
  1. LEVAQUIN [Suspect]
     Indication: SINUSITIS
     Route: 048
  2. DURAGESIC-100 [Suspect]
     Indication: PAIN
     Dosage: 100UG/HR 2 PATCHES IN 48 HOURS
     Route: 062
  3. DILAUDID [Concomitant]
     Indication: PAIN
     Route: 048
  4. METHADONE HCL [Concomitant]
     Indication: PAIN
     Route: 048
  5. ZANAFLEX [Concomitant]
     Indication: MUSCLE RELAXANT THERAPY
     Route: 048
  6. XANAX [Concomitant]
     Indication: PAIN
     Route: 048
  7. LEXAPRO [Concomitant]
     Indication: DEPRESSION
     Route: 048
  8. AMBIEN CR [Concomitant]
     Indication: SLEEP DISORDER
     Route: 048
  9. MORPHINE SULFATE [Concomitant]
     Indication: PAIN
     Dosage: AS PER NECESSARY
     Route: 048
  10. AMICAR [Concomitant]
     Route: 048
  11. SYNTHROID [Concomitant]
     Indication: THYROID HORMONE REPLACEMENT THERAPY
     Route: 048

REACTIONS (2)
  - ANGER [None]
  - INAPPROPRIATE SCHEDULE OF DRUG ADMINISTRATION [None]
